FAERS Safety Report 7079418-7 (Version None)
Quarter: 2010Q4

REPORT INFORMATION
  Report Type: 
  Country: None (occurrence: None)
  Receive Date: 20101102
  Receipt Date: 20101026
  Transmission Date: 20110411
  Serious: Yes (Hospitalization, Other)
  Sender: FDA-Public Use
  Company Number: US-MERCK-1010USA03065

PATIENT
  Age: 79 Year
  Sex: Female

DRUGS (1)
  1. FOSAMAX [Suspect]
     Route: 048

REACTIONS (7)
  - BURSITIS [None]
  - FALL [None]
  - FEMUR FRACTURE [None]
  - LACERATION [None]
  - OEDEMA PERIPHERAL [None]
  - RASH [None]
  - VISUAL ACUITY REDUCED [None]
